FAERS Safety Report 9933941 (Version 1)
Quarter: 2014Q1

REPORT INFORMATION
  Report Type: Spontaneous
  Country: US (occurrence: US)
  Receive Date: 20140228
  Receipt Date: 20140228
  Transmission Date: 20141002
  Serious: No
  Sender: FDA-Public Use
  Company Number: US-ABBVIE-14P-163-1191397-00

PATIENT
  Age: 54 Year
  Sex: Male
  Weight: 97.16 kg

DRUGS (11)
  1. ANDROGEL 1.62% [Suspect]
     Indication: HYPOGONADISM
     Dosage: 2 PUMPS
     Route: 061
     Dates: start: 2012
  2. ANDROGEL 1% PACKETS [Suspect]
     Indication: HYPOGONADISM
     Route: 061
     Dates: start: 2009, end: 2012
  3. ATRIPLA [Concomitant]
     Indication: PRODUCT USED FOR UNKNOWN INDICATION
  4. FOSINOPRIL [Concomitant]
     Indication: PRODUCT USED FOR UNKNOWN INDICATION
  5. PRAVASTATIN [Concomitant]
     Indication: PRODUCT USED FOR UNKNOWN INDICATION
  6. NIACIN [Concomitant]
     Indication: PRODUCT USED FOR UNKNOWN INDICATION
  7. FISH OIL [Concomitant]
     Indication: PRODUCT USED FOR UNKNOWN INDICATION
  8. CUVAR [Concomitant]
     Indication: PRODUCT USED FOR UNKNOWN INDICATION
  9. ASPIRIN [Concomitant]
     Indication: PRODUCT USED FOR UNKNOWN INDICATION
     Route: 048
  10. VALIUM [Concomitant]
     Indication: PRODUCT USED FOR UNKNOWN INDICATION
  11. FOLIC ACID [Concomitant]
     Indication: PRODUCT USED FOR UNKNOWN INDICATION

REACTIONS (1)
  - Blood testosterone decreased [Not Recovered/Not Resolved]
